FAERS Safety Report 25303734 (Version 1)
Quarter: 2025Q2

REPORT INFORMATION
  Report Type: Spontaneous
  Country: US (occurrence: US)
  Receive Date: 20250513
  Receipt Date: 20250513
  Transmission Date: 20250717
  Serious: Yes (Hospitalization, Other)
  Sender: NOVITIUM PHARMA
  Company Number: US-NOVITIUMPHARMA-2025USNVP01124

PATIENT
  Age: 60 Year
  Sex: Female

DRUGS (8)
  1. DIGOXIN [Suspect]
     Active Substance: DIGOXIN
     Indication: Atrial fibrillation
  2. DIGOXIN [Suspect]
     Active Substance: DIGOXIN
  3. APIXABAN [Concomitant]
     Active Substance: APIXABAN
     Indication: Atrial fibrillation
  4. PROPRANOLOL [Concomitant]
     Active Substance: PROPRANOLOL HYDROCHLORIDE
     Indication: Essential tremor
  5. GLUCAGON [Concomitant]
     Active Substance: GLUCAGON
     Indication: Bradycardia
  6. DOPAMINE [Concomitant]
     Active Substance: DOPAMINE HYDROCHLORIDE
     Indication: Heart rate
  7. ATROPINE [Concomitant]
     Active Substance: ATROPINE
     Indication: Bradycardia
  8. NOREPINEPHRINE [Concomitant]
     Active Substance: NOREPINEPHRINE
     Indication: Mean arterial pressure

REACTIONS (2)
  - BRASH syndrome [Unknown]
  - Toxicity to various agents [Unknown]
